FAERS Safety Report 8450500-2 (Version None)
Quarter: 2012Q2

REPORT INFORMATION
  Report Type: 
  Country: None (occurrence: None)
  Receive Date: 20120620
  Receipt Date: 20120614
  Transmission Date: 20120825
  Serious: Yes (Other)
  Sender: FDA-Public Use
  Company Number: US-TEVA-340972USA

PATIENT
  Sex: Female

DRUGS (1)
  1. CLARAVIS [Suspect]
     Dosage: 51.4 MILLIGRAM; QD (M,T,R,F,SA) AND BID (W,SU)
     Route: 048
     Dates: start: 20120301, end: 20120513

REACTIONS (1)
  - UNINTENDED PREGNANCY [None]
